FAERS Safety Report 15001183 (Version 1)
Quarter: 2018Q2

REPORT INFORMATION
  Report Type: Spontaneous
  Country: DE (occurrence: DE)
  Receive Date: 20180612
  Receipt Date: 20180612
  Transmission Date: 20180711
  Serious: Yes (Congenital Anomaly)
  Sender: FDA-Public Use
  Company Number: DE-TEVA-2018-DE-905053

PATIENT
  Age: 1 Day
  Sex: Male
  Weight: 3.32 kg

DRUGS (1)
  1. ENALAPRIL 10 [Suspect]
     Active Substance: ENALAPRIL
     Indication: ESSENTIAL HYPERTENSION
     Dosage: 20 [MG/D (2X10) ]/ 10 MG TWICE THE DAY OR ONLY 10 MG/D
     Route: 064
     Dates: start: 20170329, end: 20180102

REACTIONS (1)
  - Renal hypoplasia [Unknown]

NARRATIVE: CASE EVENT DATE: 20180102
